FAERS Safety Report 12162855 (Version 2)
Quarter: 2016Q1

REPORT INFORMATION
  Report Type: Spontaneous
  Country: JP (occurrence: JP)
  Receive Date: 20160309
  Receipt Date: 20160328
  Transmission Date: 20160526
  Serious: Yes (Death, Other)
  Sender: FDA-Public Use
  Company Number: JP-SA-2016SA045348

PATIENT
  Age: 70 Year
  Sex: Male

DRUGS (2)
  1. BCG FOR IMMUNOTHERAPY [Suspect]
     Active Substance: BACILLUS CALMETTE-GUERIN ANTIGEN, UNSPECIFIED SUBSTRAIN
     Indication: BLADDER CANCER
     Route: 043
  2. IMMUNOBLADDER [Suspect]
     Active Substance: BACILLUS CALMETTE-GUERIN ANTIGEN, UNSPECIFIED SUBSTRAIN
     Indication: BLADDER CANCER
     Route: 043

REACTIONS (11)
  - Shock [Fatal]
  - Arthritis reactive [Unknown]
  - Arthralgia [Unknown]
  - Haematochezia [Fatal]
  - Blood pressure decreased [Fatal]
  - Chest X-ray abnormal [Fatal]
  - Sepsis [Fatal]
  - Haematemesis [Fatal]
  - Disseminated Bacillus Calmette-Guerin infection [Fatal]
  - Disseminated intravascular coagulation [Fatal]
  - Upper gastrointestinal haemorrhage [Fatal]
